FAERS Safety Report 15317941 (Version 1)
Quarter: 2018Q3

REPORT INFORMATION
  Report Type: Spontaneous
  Country: US (occurrence: US)
  Receive Date: 20180817
  Receipt Date: 20180817
  Transmission Date: 20181010
  Serious: Yes (Other)
  Sender: FDA-Public Use
  Company Number: None

PATIENT
  Age: 62 Year
  Sex: Female
  Weight: 50.85 kg

DRUGS (5)
  1. CENTRUM SILVER [Concomitant]
     Active Substance: MINERALS\VITAMINS
  2. TRI?LUMA [Suspect]
     Active Substance: FLUOCINOLONE ACETONIDE\HYDROQUINONE\TRETINOIN
     Indication: SOLAR LENTIGO
     Route: 061
     Dates: start: 20180619, end: 20180807
  3. FOSAMAX [Concomitant]
     Active Substance: ALENDRONATE SODIUM
  4. FLAX SEED OIL TABS [Concomitant]
  5. CITRACAL + D3 [Concomitant]

REACTIONS (4)
  - Skin exfoliation [None]
  - Skin discolouration [None]
  - Contusion [None]
  - Application site erosion [None]

NARRATIVE: CASE EVENT DATE: 20180807
